FAERS Safety Report 23237209 (Version 3)
Quarter: 2024Q2

REPORT INFORMATION
  Report Type: Spontaneous
  Country: US (occurrence: US)
  Receive Date: 20231128
  Receipt Date: 20240521
  Transmission Date: 20240716
  Serious: No
  Sender: FDA-Public Use
  Company Number: US-PFIZER INC-202300397009

PATIENT
  Age: 53 Year
  Sex: Female
  Weight: 56.7 kg

DRUGS (5)
  1. NURTEC ODT [Suspect]
     Active Substance: RIMEGEPANT SULFATE
     Indication: Prophylaxis
     Dosage: EVERY OTHER DAY AS PREVENTION
  2. NURTEC ODT [Suspect]
     Active Substance: RIMEGEPANT SULFATE
     Indication: Migraine
     Dosage: CAN BE ONLY USE ONCE, MAXIMUM IS 15 TABLETS PER MONTH, BUT I DON^T TAKE THAT MUCH
  3. NURTEC ODT [Suspect]
     Active Substance: RIMEGEPANT SULFATE
     Indication: Migraine
     Dosage: DISSOLVE 1 ORAL DISINTEGRATING TABLET IN MOUTH AT THE FIRST ONSET OF MIGRAINE AS NEEDED
     Route: 048
  4. PROPRANOLOL HYDROCHLORIDE [Concomitant]
     Active Substance: PROPRANOLOL HYDROCHLORIDE
     Indication: Heart rate increased
     Dosage: 2.5 TO 5 MILLIGRAMS
  5. PROPRANOLOL HYDROCHLORIDE [Concomitant]
     Active Substance: PROPRANOLOL HYDROCHLORIDE
     Indication: Hormone level abnormal

REACTIONS (10)
  - Tinnitus [Recovering/Resolving]
  - Nausea [Recovered/Resolved with Sequelae]
  - Abdominal discomfort [Unknown]
  - Dizziness [Unknown]
  - Dyspepsia [Unknown]
  - Frequent bowel movements [Unknown]
  - Ear discomfort [Unknown]
  - Pain [Recovering/Resolving]
  - Heart rate increased [Unknown]
  - Excessive cerumen production [Recovered/Resolved]
